FAERS Safety Report 5180930-6 (Version None)
Quarter: 2006Q4

REPORT INFORMATION
  Report Type: 
  Country: None (occurrence: None)
  Receive Date: 20061218
  Receipt Date: 20061218
  Transmission Date: 20070319
  Serious: Yes (Hospitalization)
  Sender: FDA-Public Use
  Company Number: None

PATIENT
  Age: 85 Year
  Sex: Male
  Weight: 81.65 kg

DRUGS (12)
  1. LEVOFLOXACIN [Suspect]
     Indication: ARTHRITIS BACTERIAL
     Dosage: 500MG  DAILY  IV
     Route: 042
     Dates: start: 20060624, end: 20060627
  2. PIPERACILLIN AND TAZOBACTAM [Suspect]
     Indication: ARTHRITIS BACTERIAL
     Dosage: 3.375GM  EVERY 6 HOURS  IV
     Route: 042
     Dates: start: 20060624, end: 20060627
  3. HEPARIN [Concomitant]
  4. REGULAR INSULIN [Concomitant]
  5. FERROUS SULFATE TAB [Concomitant]
  6. THERAPEUTIC MULTIVITAMIN [Concomitant]
  7. GLYBURIDE [Concomitant]
  8. METFORMIN HCL [Concomitant]
  9. DOCUSATE SODIUM [Concomitant]
  10. MOM [Concomitant]
  11. COMBIVENT [Concomitant]
  12. DARVOCET-N 100 [Concomitant]

REACTIONS (2)
  - RENAL FAILURE ACUTE [None]
  - TUBULOINTERSTITIAL NEPHRITIS [None]
